FAERS Safety Report 16871098 (Version 7)
Quarter: 2020Q2

REPORT INFORMATION
  Report Type: Report from Study
  Country: JP (occurrence: JP)
  Receive Date: 20190930
  Receipt Date: 20200504
  Transmission Date: 20200713
  Serious: Yes (Hospitalization, Other)
  Sender: FDA-Public Use
  Company Number: JP-GILEAD-2019-0430093

PATIENT
  Age: 57 Year
  Sex: Male
  Weight: 71.4 kg

DRUGS (11)
  1. SOFOSBUVIR W/VELPATASVIR [Suspect]
     Active Substance: SOFOSBUVIR\VELPATASVIR
     Indication: HEPATITIS C
     Dosage: 1 DOSAGE FORM, QD
     Route: 048
     Dates: start: 20190319, end: 20190617
  2. URSODEOXYCHOLIC ACID [Concomitant]
     Active Substance: URSODIOL
     Indication: HEPATITIS C
     Dosage: 600 MG
     Route: 048
     Dates: end: 20190423
  3. PROPRANOLOL HYDROCHLORIDE. [Concomitant]
     Active Substance: PROPRANOLOL HYDROCHLORIDE
     Indication: DISEASE COMPLICATION
     Dosage: 10 MG
     Route: 048
  4. TRICHLORMETHIAZIDE [Concomitant]
     Active Substance: TRICHLORMETHIAZIDE
     Indication: HEPATIC CIRRHOSIS
     Dosage: 2 MG
     Route: 048
     Dates: end: 20190501
  5. NEXIUM [Concomitant]
     Active Substance: ESOMEPRAZOLE MAGNESIUM
     Indication: DISEASE COMPLICATION
     Dosage: 20 MG
     Route: 048
  6. FUROSEMIDE. [Concomitant]
     Active Substance: FUROSEMIDE
     Indication: HEPATIC CIRRHOSIS
     Dosage: 40 MG
     Route: 048
  7. MAGMITT [Concomitant]
     Active Substance: MAGNESIUM OXIDE
     Indication: DISEASE COMPLICATION
     Dosage: 990 MG
     Route: 048
  8. SOFOSBUVIR W/VELPATASVIR [Suspect]
     Active Substance: SOFOSBUVIR\VELPATASVIR
     Indication: HEPATIC CIRRHOSIS
  9. AMINOLEBAN EN [Concomitant]
     Active Substance: UNSPECIFIED INGREDIENT
     Indication: HEPATIC CIRRHOSIS
     Dosage: UNK
     Route: 048
     Dates: end: 20190401
  10. SPIRONOLACTONE. [Concomitant]
     Active Substance: SPIRONOLACTONE
     Indication: HEPATIC CIRRHOSIS
     Dosage: 25 MG
     Route: 048
  11. LIVACT [AMINO ACIDS NOS] [Concomitant]
     Indication: HEPATIC CIRRHOSIS
     Dosage: 3 DOSAGE FORM
     Route: 048

REACTIONS (7)
  - Hepatocellular carcinoma [Recovered/Resolved]
  - Oedema due to hepatic disease [Recovered/Resolved]
  - Hepatocellular carcinoma [Recovering/Resolving]
  - Portal vein thrombosis [Recovering/Resolving]
  - Hepatocellular carcinoma [Recovered/Resolved]
  - Hyperuricaemia [Recovered/Resolved]
  - Hepatic encephalopathy [Recovered/Resolved]

NARRATIVE: CASE EVENT DATE: 20190401
